FAERS Safety Report 7605023-7 (Version None)
Quarter: 2011Q3

REPORT INFORMATION
  Report Type: 
  Country: None (occurrence: None)
  Receive Date: 20110713
  Receipt Date: 20110705
  Transmission Date: 20111222
  Serious: No
  Sender: FDA-Public Use
  Company Number: US-BIOGENIDEC-2011BI025147

PATIENT
  Age: 41 Year
  Sex: Female

DRUGS (2)
  1. AVONEX [Suspect]
     Route: 030
     Dates: start: 20030101
  2. AVONEX [Suspect]
     Indication: MULTIPLE SCLEROSIS
     Route: 030
     Dates: start: 20000705, end: 20030101

REACTIONS (6)
  - BLOOD SODIUM DECREASED [None]
  - TOOTHACHE [None]
  - PYREXIA [None]
  - INFLUENZA LIKE ILLNESS [None]
  - GINGIVAL PAIN [None]
  - URINARY TRACT INFECTION [None]
